FAERS Safety Report 11158361 (Version 1)
Quarter: 2015Q2

REPORT INFORMATION
  Report Type: Spontaneous
  Country: US (occurrence: None)
  Receive Date: 20150514
  Receipt Date: 20150514
  Transmission Date: 20150821
  Serious: Yes (Death)
  Sender: FDA-Public Use
  Company Number: 2015010064

PATIENT
  Age: 32 Year
  Sex: Male

DRUGS (6)
  1. ZOLPIDEM (ZOLPIDEM) [Suspect]
     Active Substance: ZOLPIDEM TARTRATE
  2. TIZANIDINE (TIZANIDINE) [Suspect]
     Active Substance: TIZANIDINE
  3. HYDROCODONE W/ACETAMINOPHEN (HYDROCODONE, ACETAMINOPHEN) [Suspect]
     Active Substance: ACETAMINOPHEN\HYDROCODONE BITARTRATE
  4. TRAZODONE [Suspect]
     Active Substance: TRAZODONE HYDROCHLORIDE
  5. NABUMETONE (NABUMETONE) [Suspect]
     Active Substance: NABUMETONE
  6. BUTALBITAL, ACETAMINOPHEN + CAFFEINE (ACETAMINOPHEN, BUTALBITAL, CAFFEINE) [Suspect]
     Active Substance: ACETAMINOPHEN\BUTALBITAL\CAFFEINE

REACTIONS (2)
  - Completed suicide [None]
  - Cardio-respiratory arrest [None]

NARRATIVE: CASE EVENT DATE: 2013
